FAERS Safety Report 4291438-4 (Version None)
Quarter: 2004Q1

REPORT INFORMATION
  Report Type: 
  Country: None (occurrence: None)
  Receive Date: 20040210
  Receipt Date: 20040210
  Transmission Date: 20041129
  Serious: Yes (Death, Hospitalization)
  Sender: FDA-Public Use
  Company Number: None

PATIENT
  Age: 60 Year
  Sex: Female
  Weight: 182 kg

DRUGS (11)
  1. METFORMIN XR [Suspect]
     Indication: DIABETES MELLITUS
     Dosage: 2 GRAM DAILY ORAL
     Route: 048
  2. ATENOLOL [Concomitant]
  3. HUMULIN [Concomitant]
  4. SYNTHROID [Concomitant]
  5. LIPITOR [Concomitant]
  6. ASPIRIN [Concomitant]
  7. DIOVAN [Concomitant]
  8. QUININE [Concomitant]
  9. EYE DROPS [Concomitant]
  10. VERAPAMIL [Concomitant]
  11. ARTHROTEC [Concomitant]

REACTIONS (14)
  - CHILLS [None]
  - DIARRHOEA [None]
  - FEELING ABNORMAL [None]
  - HYPERHIDROSIS [None]
  - HYPOTENSION [None]
  - HYPOXIA [None]
  - LACTIC ACIDOSIS [None]
  - NAUSEA [None]
  - PAIN [None]
  - PAIN IN EXTREMITY [None]
  - PYREXIA [None]
  - RENAL FAILURE ACUTE [None]
  - RESPIRATORY ARREST [None]
  - VOMITING [None]
